FAERS Safety Report 8991912 (Version 3)
Quarter: 2013Q1

REPORT INFORMATION
  Report Type: Report from Study
  Country: US (occurrence: US)
  Receive Date: 20121231
  Receipt Date: 20130211
  Transmission Date: 20140127
  Serious: Yes (Hospitalization)
  Sender: FDA-Public Use
  Company Number: US-ABBOTT-12P-163-1026447-00

PATIENT
  Sex: Female

DRUGS (16)
  1. HUMIRA [Suspect]
     Indication: RHEUMATOID ARTHRITIS
     Dates: start: 20110922
  2. HUMIRA [Suspect]
  3. VITAMIN B12 [Concomitant]
     Indication: PRODUCT USED FOR UNKNOWN INDICATION
     Dosage: 1000 MCG WEEKLY
  4. HYDROXYCHLOROQUINE [Concomitant]
     Indication: RHEUMATOID ARTHRITIS
  5. METHOTREXATE [Concomitant]
     Indication: PRODUCT USED FOR UNKNOWN INDICATION
     Dosage: 5 TABS WEEKLY
  6. VIT D [Concomitant]
     Indication: PRODUCT USED FOR UNKNOWN INDICATION
  7. LISINOPRIL HCTZ [Concomitant]
     Indication: HYPERTENSION
     Dosage: 10/12.5 MG DAILY
  8. OMEPRAZOLE [Concomitant]
     Indication: GASTROOESOPHAGEAL REFLUX DISEASE
     Dosage: 20 MG DAILY
  9. DOCUSATE SODIUM [Concomitant]
     Indication: CONSTIPATION
     Dosage: 250 MG DAILY
  10. RANITIDINE [Concomitant]
     Indication: GASTRIC DISORDER
     Dosage: 150 MG DAILY
  11. OXYBUTYNIN [Concomitant]
     Indication: NOCTURIA
     Dosage: 5 MG DAILY
  12. PRISTIQ [Concomitant]
     Indication: DEPRESSION
     Dosage: 100 MG DAILY
  13. FOLIC ACID [Concomitant]
     Indication: PRODUCT USED FOR UNKNOWN INDICATION
     Dosage: 2 TABS DAILY
  14. ZOLPIDEM [Concomitant]
     Indication: INSOMNIA
     Dosage: 10 MG DAILY
  15. METHADONE [Concomitant]
     Indication: PAIN
     Dosage: 2 TAB TID
  16. OXYCODONE [Concomitant]
     Indication: PAIN
     Dosage: 10/325 MG, 3 ONCE DAILY

REACTIONS (6)
  - Anal prolapse [Recovered/Resolved]
  - Mobility decreased [Unknown]
  - Local swelling [Unknown]
  - Procedural pain [Recovered/Resolved]
  - Device malfunction [Unknown]
  - Drug dose omission [Unknown]
